FAERS Safety Report 10157057 (Version 2)
Quarter: 2014Q2

REPORT INFORMATION
  Report Type: Spontaneous
  Country: US (occurrence: US)
  Receive Date: 20140507
  Receipt Date: 20140526
  Transmission Date: 20141212
  Serious: Yes (Other)
  Sender: FDA-Public Use
  Company Number: US-PFIZER INC-2014122848

PATIENT
  Age: 62 Year
  Sex: Female
  Weight: 48.98 kg

DRUGS (1)
  1. VFEND [Suspect]
     Indication: ASPERGILLUS INFECTION
     Dosage: 200 MG, 2X/DAY
     Dates: start: 201303

REACTIONS (2)
  - Hepatic failure [Unknown]
  - Hepatic enzyme increased [Unknown]
